FAERS Safety Report 4598533-0 (Version None)
Quarter: 2005Q1

REPORT INFORMATION
  Report Type: 
  Country: None (occurrence: None)
  Receive Date: 20050204
  Receipt Date: 20041026
  Transmission Date: 20050727
  Serious: Yes (Death)
  Sender: FDA-Public Use
  Company Number: PHEH2004US11500

PATIENT
  Age: 88 Year
  Sex: Female

DRUGS (5)
  1. CLOZARIL [Suspect]
     Dosage: 100 MG/DAY ORAL
     Route: 048
     Dates: start: 20010201
  2. DEMADEX [Concomitant]
  3. DITROPAN [Concomitant]
  4. POTASSIUM ACETATE [Concomitant]
  5. MULTIVITAMINS W/MINERALS (MINERALS NOS, VITAMINS NOS) [Concomitant]

REACTIONS (1)
  - DEATH [None]
